FAERS Safety Report 6951681-X (Version None)
Quarter: 2010Q3

REPORT INFORMATION
  Report Type: 
  Country: None (occurrence: None)
  Receive Date: 20100828
  Receipt Date: 20100407
  Transmission Date: 20110219
  Serious: No
  Sender: FDA-Public Use
  Company Number: US-ABBOTT-10P-163-0636845-00

PATIENT
  Sex: Male
  Weight: 136.2 kg

DRUGS (3)
  1. NIASPAN [Suspect]
     Indication: HYPERLIPIDAEMIA
     Dosage: AT NIGHT
     Route: 048
     Dates: start: 20090401, end: 20090401
  2. NIASPAN [Suspect]
     Dosage: AT NIGHT
     Route: 048
     Dates: start: 20100401
  3. ASPIRIN [Concomitant]
     Indication: PRODUCT USED FOR UNKNOWN INDICATION
     Dosage: WITH NIASPAN

REACTIONS (1)
  - FLUSHING [None]
